FAERS Safety Report 6965218-2 (Version None)
Quarter: 2010Q3

REPORT INFORMATION
  Report Type: 
  Country: None (occurrence: None)
  Receive Date: 20100903
  Receipt Date: 20100823
  Transmission Date: 20110219
  Serious: Yes (Other)
  Sender: FDA-Public Use
  Company Number: PHHY2010JP56568

PATIENT
  Sex: Female

DRUGS (1)
  1. FEMARA [Suspect]
     Dosage: UNK
     Route: 048
     Dates: start: 20100804

REACTIONS (3)
  - ASTHENIA [None]
  - DEMENTIA [None]
  - MEMORY IMPAIRMENT [None]
